FAERS Safety Report 10206709 (Version 1)
Quarter: 2014Q2

REPORT INFORMATION
  Report Type: Spontaneous
  Country: US (occurrence: None)
  Receive Date: 20140527
  Receipt Date: 20140527
  Transmission Date: 20141212
  Serious: Yes (Other)
  Sender: FDA-Public Use
  Company Number: None

PATIENT
  Age: 54 Year
  Sex: Female
  Weight: 66.23 kg

DRUGS (2)
  1. CLONIDINE HYDROCHLORIDE [Suspect]
     Indication: HOT FLUSH
     Route: 048
     Dates: start: 20140517, end: 20140521
  2. CLONIDINE HYDROCHLORIDE [Suspect]
     Indication: HYPERTENSION
     Route: 048
     Dates: start: 20140517, end: 20140521

REACTIONS (14)
  - Drug withdrawal syndrome [None]
  - Headache [None]
  - Irritability [None]
  - Anxiety [None]
  - No therapeutic response [None]
  - Blood pressure increased [None]
  - Mental disorder [None]
  - Product substitution issue [None]
  - Product quality issue [None]
  - Product formulation issue [None]
  - Product packaging issue [None]
  - Circumstance or information capable of leading to medication error [None]
  - Impaired work ability [None]
  - Drug effect decreased [None]
